FAERS Safety Report 4492657-4 (Version None)
Quarter: 2004Q4

REPORT INFORMATION
  Report Type: 
  Country: None (occurrence: None)
  Receive Date: 20041029
  Receipt Date: 20041016
  Transmission Date: 20050328
  Serious: Yes (Hospitalization)
  Sender: FDA-Public Use
  Company Number: 2004239476NO

PATIENT
  Age: 84 Year
  Sex: Male

DRUGS (13)
  1. CELEBREX [Suspect]
     Indication: BACK PAIN
     Dosage: 200 MG, BID, ORAL
     Route: 048
     Dates: start: 20040826, end: 20040901
  2. WARFARIN SODIUM [Suspect]
     Indication: ATRIAL FIBRILLATION
     Dosage: ORAL
     Route: 048
     Dates: start: 19990101, end: 20040901
  3. PREDNISOLONE [Concomitant]
  4. NORVASC [Concomitant]
  5. DIGITOXIN TAB [Concomitant]
  6. SELO-ZOK (METOPROLOL SUCCINATE) [Concomitant]
  7. IMDUR [Concomitant]
  8. BUMETANIDE [Concomitant]
  9. NITROGLICERINA [Concomitant]
  10. ALOPAM [Concomitant]
  11. PARACET [Concomitant]
  12. SENDOXAN [Concomitant]
  13. HEMINEVRIN (CLOMETHIAZOLE EDISILATE) [Concomitant]

REACTIONS (4)
  - BACK PAIN [None]
  - BLOOD CREATININE INCREASED [None]
  - DRUG INTERACTION [None]
  - INTERNATIONAL NORMALISED RATIO INCREASED [None]
